FAERS Safety Report 24978774 (Version 1)
Quarter: 2025Q1

REPORT INFORMATION
  Report Type: Report from Study
  Country: IN (occurrence: IN)
  Receive Date: 20250218
  Receipt Date: 20250218
  Transmission Date: 20250409
  Serious: Yes (Hospitalization)
  Sender: ROCHE
  Company Number: IN-ROCHE-10000165076

PATIENT
  Age: 68 Year
  Sex: Male

DRUGS (3)
  1. TECENTRIQ [Suspect]
     Active Substance: ATEZOLIZUMAB
     Indication: Hepatocellular carcinoma
     Route: 040
     Dates: start: 20240612
  2. AVASTIN [Suspect]
     Active Substance: BEVACIZUMAB
     Indication: Hepatocellular carcinoma
     Route: 040
     Dates: start: 20240612
  3. AVASTIN [Suspect]
     Active Substance: BEVACIZUMAB
     Route: 040
     Dates: start: 20240612

REACTIONS (5)
  - Hepatitis [Unknown]
  - Chills [Unknown]
  - Hyperhidrosis [Unknown]
  - Asthenia [Unknown]
  - Nasopharyngitis [Unknown]
